FAERS Safety Report 11336804 (Version 4)
Quarter: 2015Q4

REPORT INFORMATION
  Report Type: Report from Study
  Country: JP (occurrence: JP)
  Receive Date: 20150804
  Receipt Date: 20151022
  Transmission Date: 20160304
  Serious: Yes (Death, Other)
  Sender: FDA-Public Use
  Company Number: JP-OTSUKA-2015_006485

PATIENT

DRUGS (17)
  1. BLOPRESS [Concomitant]
     Active Substance: CANDESARTAN CILEXETIL
     Indication: PRODUCT USED FOR UNKNOWN INDICATION
     Dosage: 4 MG, DAILY DOSE
     Route: 048
     Dates: end: 20150717
  2. SLOW K [Concomitant]
     Active Substance: POTASSIUM CHLORIDE
     Indication: PRODUCT USED FOR UNKNOWN INDICATION
     Dosage: 600 MG, DAILY DOSE
     Route: 048
     Dates: end: 20150717
  3. SANMEL [Concomitant]
     Indication: PROPHYLAXIS
     Dosage: 30 ML, DAILY DOSE
     Route: 048
     Dates: end: 20150717
  4. SANMEL [Concomitant]
     Indication: PRODUCT USED FOR UNKNOWN INDICATION
  5. ALDACTONE A [Concomitant]
     Active Substance: SPIRONOLACTONE
     Indication: FLUID RETENTION
     Dosage: 75 MG, DAILY DOSE
     Route: 048
     Dates: end: 20150717
  6. ISOLEUCINE W/LEUCINE/VALINE [Concomitant]
     Active Substance: ISOLEUCINE\LEUCINE\VALINE
     Indication: PRODUCT USED FOR UNKNOWN INDICATION
     Dosage: 8.3 G, DAILY DOSE
     Route: 048
     Dates: end: 20150717
  7. MUCODYNE [Concomitant]
     Active Substance: CARBOCYSTEINE
     Indication: PRODUCT USED FOR UNKNOWN INDICATION
     Dosage: 1500 MG, DAILY DOSE
     Route: 048
     Dates: end: 20150717
  8. TOLVAPTAN [Suspect]
     Active Substance: TOLVAPTAN
     Indication: FLUID RETENTION
     Dosage: 7.5 MG, QD (IN THE MORNING)
     Route: 048
     Dates: start: 20150608, end: 20150717
  9. ALBUMIN [Concomitant]
     Active Substance: ALBUMIN (HUMAN)
     Dosage: 50 ML, DAILY DOSE
     Route: 042
     Dates: start: 20150703, end: 20150705
  10. GLYCYRON [Concomitant]
     Active Substance: AMMONIUM GLYCYRRHIZATE\GLYCINE\METHIONINE
     Indication: PRODUCT USED FOR UNKNOWN INDICATION
     Dosage: 3 DF, DAILY DOSE
     Route: 048
     Dates: end: 20150717
  11. ALESION [Concomitant]
     Active Substance: EPINASTINE HYDROCHLORIDE
     Indication: PRURITUS
     Dosage: 20 MG, DAILY DOSE
     Route: 048
     Dates: end: 20150717
  12. URSODEOXYCHOLIC ACID [Concomitant]
     Active Substance: URSODIOL
     Indication: PRODUCT USED FOR UNKNOWN INDICATION
     Dosage: 900 MG, DAILY DOSE
     Route: 048
     Dates: end: 20150717
  13. ALBUMIN [Concomitant]
     Active Substance: ALBUMIN (HUMAN)
     Indication: HYPOALBUMINAEMIA
     Dosage: 50 ML, DAILY DOSE
     Route: 042
     Dates: start: 20150615, end: 20150616
  14. ALBUMIN [Concomitant]
     Active Substance: ALBUMIN (HUMAN)
     Dosage: 50 ML, UNK
     Route: 042
     Dates: start: 20150629, end: 20150630
  15. ESOMEPRAZOLE MAGNESIUM. [Concomitant]
     Active Substance: ESOMEPRAZOLE MAGNESIUM
     Indication: PROPHYLAXIS
     Dosage: 20 MG, DAILY DOSE
     Route: 048
     Dates: end: 20150717
  16. CLOPERASTINE FENDIZOATE [Concomitant]
     Indication: PRODUCT USED FOR UNKNOWN INDICATION
     Dosage: 30 MG, DAILY DOSE
     Route: 048
     Dates: end: 20150717
  17. FUROSEMIDE. [Concomitant]
     Active Substance: FUROSEMIDE
     Indication: FLUID RETENTION
     Dosage: 80 MG, DAILY DOSE
     Route: 048
     Dates: end: 20150717

REACTIONS (1)
  - Hepatic failure [Fatal]

NARRATIVE: CASE EVENT DATE: 20150717
